FAERS Safety Report 7853976-4 (Version None)
Quarter: 2011Q4

REPORT INFORMATION
  Report Type: 
  Country: None (occurrence: None)
  Receive Date: 20111026
  Receipt Date: 20111024
  Transmission Date: 20120403
  Serious: No
  Sender: FDA-Public Use
  Company Number: US-PFIZER INC-2011229870

PATIENT
  Sex: Male
  Weight: 83.7 kg

DRUGS (30)
  1. DEXAMETHASONE [Concomitant]
     Dosage: 4 MG, AS DIRECTED
     Route: 048
  2. MEGACE [Concomitant]
     Dosage: 800 MG, EVERY DAY
     Route: 048
  3. RESTORIL [Concomitant]
     Indication: SLEEP DISORDER
     Dosage: 15 MG, AT BEDTIME
     Route: 048
  4. SIMVASTATIN [Concomitant]
     Dosage: 20 MG, AT BEDTIME
     Route: 048
  5. XANAX [Concomitant]
     Indication: SLEEP DISORDER
  6. ALPRAZOLAM [Concomitant]
     Indication: NAUSEA
  7. CODEINE AND GUAIFENESIN [Concomitant]
     Dosage: 10 ML, EVERY 4 HOURS; AS NEEDED
     Route: 048
  8. PAXIL [Concomitant]
     Dosage: 40 MG, EVERY DAY
     Route: 048
  9. ALPRAZOLAM [Concomitant]
     Indication: VOMITING
  10. LEXAPRO [Concomitant]
     Indication: ANXIETY
     Dosage: 20 MG, EVERY DAY
     Route: 048
  11. KEPPRA [Concomitant]
     Indication: CONVULSION
     Dosage: 500 MG, 2X/DAY
  12. XANAX [Concomitant]
     Indication: DEPRESSION
  13. PEPCID [Concomitant]
     Dosage: 20 MG, 2X/DAY
  14. BENADRYL [Concomitant]
     Dosage: UNK
  15. PROCHLORPERAZINE [Concomitant]
     Indication: NAUSEA
     Dosage: 10 MG, AT BEDTIME
     Route: 048
  16. ALPRAZOLAM [Concomitant]
     Indication: INSOMNIA
  17. AMBIEN [Concomitant]
     Dosage: 12.5 MG, AT BEDTIME
  18. FAMOTIDINE [Concomitant]
     Dosage: 20 MG, 2X/DAY
     Route: 048
  19. LEXAPRO [Concomitant]
     Indication: DEPRESSION
     Dosage: 10 MG, 1X/DAY
  20. PROCHLORPERAZINE [Concomitant]
     Indication: VOMITING
  21. XANAX [Concomitant]
     Indication: ANXIETY
     Dosage: 1 TABLET EVERY 3 HOURS AS NEEDED FOR ANXIETY OR 2 TABLETS AT BED TIME FOR SLEEP
  22. AMBIEN [Concomitant]
     Indication: SLEEP DISORDER
     Dosage: 10 MG, AT BEDTIME; AS NEEDED
     Route: 048
  23. ONDANSETRON [Concomitant]
     Indication: NAUSEA
     Dosage: 8 MG, EVERY 12 HOURS
     Route: 048
  24. ONDANSETRON [Concomitant]
     Indication: VOMITING
  25. METFORMIN [Concomitant]
     Dosage: 1000 MG, 2X/DAY
     Route: 048
  26. XALKORI [Suspect]
     Indication: NON-SMALL CELL LUNG CANCER
     Dosage: 250 MG, 2X/DAY
     Route: 048
     Dates: start: 20110915
  27. ALPRAZOLAM [Concomitant]
     Indication: ANXIETY
     Dosage: 1 MG, 3X/DAY; AS NEEDED
     Route: 048
  28. LEVETIRACETAM [Concomitant]
     Dosage: 500 MG,
     Route: 048
  29. LISINOPRIL [Concomitant]
     Dosage: 20 MG, EVERY DAY
     Route: 048
  30. SENNA [Concomitant]
     Dosage: UNK

REACTIONS (5)
  - WEIGHT INCREASED [None]
  - TREMOR [None]
  - FATIGUE [None]
  - INCREASED APPETITE [None]
  - DIARRHOEA [None]
